FAERS Safety Report 15468537 (Version 1)
Quarter: 2018Q4

REPORT INFORMATION
  Report Type: Spontaneous
  Country: US (occurrence: US)
  Receive Date: 20181005
  Receipt Date: 20181005
  Transmission Date: 20190204
  Serious: No
  Sender: FDA-Public Use
  Company Number: US-SA-2018SA272470

PATIENT
  Age: 27 Year
  Sex: Female
  Weight: 53.52 kg

DRUGS (6)
  1. CEREZYME [Suspect]
     Active Substance: IMIGLUCERASE
     Indication: GAUCHER^S DISEASE
     Dosage: 400 UNK AS DIRECTED
     Route: 041
  2. SODIUM CHLORIDE. [Concomitant]
     Active Substance: SODIUM CHLORIDE
     Dosage: 0.9 % IV ASDIRECCTED
     Route: 042
     Dates: start: 20160311
  3. HEPARIN [Concomitant]
     Active Substance: HEPARIN SODIUM
     Dosage: 1000 UN/ML IV AS DIRECTED
     Route: 042
     Dates: start: 20160311
  4. NORMAL SALINE [Concomitant]
     Active Substance: SODIUM CHLORIDE
     Dosage: 0.9 % IV AS DIRECTED
     Route: 042
     Dates: start: 20160311
  5. EPINEPHRINE. [Concomitant]
     Active Substance: EPINEPHRINE
     Indication: ANAPHYLACTIC REACTION
     Dosage: 0.3 MG, PRN, AS NEEDED
     Route: 030
     Dates: start: 20160311
  6. STERILE WATER [Concomitant]
     Active Substance: WATER
     Dosage: 50 ML  IV AS DIRECCTED
     Route: 042
     Dates: start: 20160311

REACTIONS (1)
  - Poor venous access [Unknown]
